FAERS Safety Report 12154998 (Version 1)
Quarter: 2016Q1

REPORT INFORMATION
  Report Type: Spontaneous
  Country: ES (occurrence: ES)
  Receive Date: 20160307
  Receipt Date: 20160307
  Transmission Date: 20160526
  Serious: Yes (Hospitalization)
  Sender: FDA-Public Use
  Company Number: ES-IPCA LABORATORIES LIMITED-IPC201602-000294

PATIENT
  Age: 76 Year
  Sex: Male

DRUGS (3)
  1. FUROSEMIDE. [Suspect]
     Active Substance: FUROSEMIDE
  2. FUROSEMIDE. [Suspect]
     Active Substance: FUROSEMIDE
  3. HYDROCHLOROTHIAZIDE. [Suspect]
     Active Substance: HYDROCHLOROTHIAZIDE
     Route: 048

REACTIONS (2)
  - Hyponatraemia [Recovered/Resolved]
  - Renal impairment [Unknown]
